FAERS Safety Report 13393079 (Version 1)
Quarter: 2017Q1

REPORT INFORMATION
  Report Type: Spontaneous
  Country: BR (occurrence: BR)
  Receive Date: 20170331
  Receipt Date: 20170331
  Transmission Date: 20170429
  Serious: Yes (Other)
  Sender: FDA-Public Use
  Company Number: BR-JNJFOC-20170325587

PATIENT
  Sex: Female

DRUGS (1)
  1. ORTHO EVRA [Suspect]
     Active Substance: ETHINYL ESTRADIOL\NORELGESTROMIN
     Indication: CONTRACEPTION
     Route: 065

REACTIONS (6)
  - Depression [Unknown]
  - Vaginal haemorrhage [Unknown]
  - Libido decreased [Unknown]
  - Insomnia [Recovering/Resolving]
  - Panic disorder [Unknown]
  - Hypersomnia [Unknown]
